FAERS Safety Report 9868405 (Version 1)
Quarter: 2014Q1

REPORT INFORMATION
  Report Type: Spontaneous
  Country: AR (occurrence: AR)
  Receive Date: 20140204
  Receipt Date: 20140204
  Transmission Date: 20141002
  Serious: Yes (Other)
  Sender: FDA-Public Use
  Company Number: PHHY2014AR013453

PATIENT
  Sex: Female

DRUGS (6)
  1. ACLASTA [Suspect]
     Indication: OSTEOPENIA
     Dosage: 1/YEAR
     Route: 042
     Dates: start: 2011
  2. ATLANSIL [Concomitant]
     Indication: ARRHYTHMIA
     Dosage: UNK UKN, UNK
     Dates: end: 201207
  3. PROPANOLOL [Concomitant]
     Indication: ARRHYTHMIA
     Dosage: 1.5 UKN, DAILY
     Dates: start: 201208
  4. DIUREX /ARG/ [Concomitant]
     Dosage: 0.5 UKN, QOD
  5. STEROGYL [Concomitant]
     Dosage: 1/MONTH
  6. HOLOMAGNESIO [Concomitant]
     Dosage: UNK UKN, UNK

REACTIONS (4)
  - Paranasal cyst [Recovering/Resolving]
  - Tooth disorder [Recovering/Resolving]
  - Hyperthyroidism [Recovered/Resolved]
  - Abscess oral [Recovering/Resolving]
